FAERS Safety Report 15465853 (Version 1)
Quarter: 2018Q4

REPORT INFORMATION
  Report Type: Spontaneous
  Country: US (occurrence: US)
  Receive Date: 20181004
  Receipt Date: 20181004
  Transmission Date: 20190204
  Serious: No
  Sender: FDA-Public Use
  Company Number: US-FOUNDATIONCONSUMERHC-2018-US-012160

PATIENT
  Age: 20 Year
  Sex: Female
  Weight: 68.04 kg

DRUGS (1)
  1. PLAN B ONE-STEP [Suspect]
     Active Substance: LEVONORGESTREL
     Indication: POST COITAL CONTRACEPTION
     Dosage: 1.5MG AFTER 2 SEPERATE INCIDENTS OF INTERCOURSE
     Route: 050
     Dates: start: 20180610, end: 20180625

REACTIONS (2)
  - Polymenorrhoea [Recovered/Resolved]
  - Mood swings [Recovered/Resolved]

NARRATIVE: CASE EVENT DATE: 201807
